FAERS Safety Report 24193491 (Version 4)
Quarter: 2024Q4

REPORT INFORMATION
  Report Type: Spontaneous
  Country: US (occurrence: US)
  Receive Date: 20240809
  Receipt Date: 20241119
  Transmission Date: 20250114
  Serious: Yes (Other)
  Sender: CATALYST PHARMA
  Company Number: US-CATALYST PHARMACEUTICALS-US-CATA-24-00327

PATIENT
  Sex: Male
  Weight: 13.492 kg

DRUGS (8)
  1. AGAMREE [Suspect]
     Active Substance: VAMOROLONE
     Indication: Duchenne muscular dystrophy
     Dosage: 2.2 ML DAILY
     Route: 048
     Dates: start: 20240329, end: 2024
  2. AGAMREE [Suspect]
     Active Substance: VAMOROLONE
     Dosage: 2 ML DAILY
     Route: 048
     Dates: start: 20240617
  3. ASPIRIN [Concomitant]
     Active Substance: ASPIRIN
     Indication: Product used for unknown indication
     Dosage: UNKNOWN
     Route: 065
  4. ALBUTEROL [Concomitant]
     Active Substance: ALBUTEROL
     Indication: Asthma
     Dosage: 2 PUFFS, AS NEEDED
     Route: 055
  5. ASMANEX [Concomitant]
     Active Substance: MOMETASONE FUROATE
     Indication: Asthma
     Dosage: 2 PUFFS, TWICE A DAY
     Route: 065
  6. FAMOTIDINE [Concomitant]
     Active Substance: FAMOTIDINE
     Indication: Gastrooesophageal reflux disease
     Dosage: 0.83 ML TWICE A DAY
     Route: 048
  7. HYDROCORTISONE [Concomitant]
     Active Substance: HYDROCORTISONE
     Indication: Duchenne muscular dystrophy
     Dosage: 5 MG, THREE TIMES DAILY
     Route: 065
  8. VITAMIN D3 [Concomitant]
     Active Substance: CHOLECALCIFEROL
     Indication: Hypovitaminosis
     Dosage: 1000 UNITS DAILY
     Route: 065

REACTIONS (10)
  - Autism spectrum disorder [Not Recovered/Not Resolved]
  - Self-destructive behaviour [Not Recovered/Not Resolved]
  - Condition aggravated [Not Recovered/Not Resolved]
  - Foster care [Unknown]
  - Weight decreased [Unknown]
  - Contusion [Not Recovered/Not Resolved]
  - Anger [Not Recovered/Not Resolved]
  - Behaviour disorder [Recovering/Resolving]
  - Aggression [Recovering/Resolving]
  - Headache [Not Recovered/Not Resolved]

NARRATIVE: CASE EVENT DATE: 20240101
